FAERS Safety Report 5743294-2 (Version None)
Quarter: 2008Q2

REPORT INFORMATION
  Report Type: 
  Country: None (occurrence: None)
  Receive Date: 20080519
  Receipt Date: 20080509
  Transmission Date: 20081010
  Serious: Yes (Other)
  Sender: FDA-Public Use
  Company Number: AR-PFIZER INC-2007071390

PATIENT
  Sex: Male
  Weight: 75 kg

DRUGS (1)
  1. SUTENT [Suspect]
     Indication: RENAL CANCER
     Route: 048
     Dates: start: 20070823, end: 20070829

REACTIONS (8)
  - ANGINA PECTORIS [None]
  - COLON CANCER [None]
  - DYSPNOEA [None]
  - FEELING HOT [None]
  - HYPERTENSION [None]
  - MUCOUS STOOLS [None]
  - MYALGIA [None]
  - NEOPLASM MALIGNANT [None]
